FAERS Safety Report 26023444 (Version 2)
Quarter: 2025Q4

REPORT INFORMATION
  Report Type: Spontaneous
  Country: US (occurrence: US)
  Receive Date: 20251111
  Receipt Date: 20251117
  Transmission Date: 20260118
  Serious: No
  Sender: GALDERMA
  Company Number: US-GALDERMA-US2025021492

PATIENT

DRUGS (2)
  1. NEMLUVIO [Suspect]
     Active Substance: NEMOLIZUMAB-ILTO
     Indication: Neurodermatitis
     Dosage: UNK, (EVERY 4 WEEKS)
     Route: 058
     Dates: start: 202510, end: 202510
  2. NEMLUVIO [Suspect]
     Active Substance: NEMOLIZUMAB-ILTO
     Dosage: UNK (EVERY 4 WEEKS)
     Route: 058
     Dates: start: 2025, end: 2025

REACTIONS (5)
  - Injection site ulcer [Unknown]
  - Injection site papule [Unknown]
  - Injection site discolouration [Unknown]
  - Injection site erythema [Unknown]
  - Product communication issue [Recovered/Resolved]

NARRATIVE: CASE EVENT DATE: 20250101
